FAERS Safety Report 4629451-7 (Version None)
Quarter: 2005Q2

REPORT INFORMATION
  Report Type: 
  Country: None (occurrence: None)
  Receive Date: 20050405
  Receipt Date: 20050321
  Transmission Date: 20051028
  Serious: Yes (Life-Threatening)
  Sender: FDA-Public Use
  Company Number: GB-2005-004101

PATIENT
  Age: 32 Year
  Sex: Female

DRUGS (1)
  1. MIRENA [Suspect]
     Indication: CONTRACEPTION
     Dosage: 20 UG/DAY, CONT, INTRA-UTERINE
     Route: 015
     Dates: start: 20030901

REACTIONS (3)
  - DRUG EXPOSURE DURING PREGNANCY [None]
  - PLACENTAL DISORDER [None]
  - PREGNANCY WITH CONTRACEPTIVE DEVICE [None]
